FAERS Safety Report 20825669 (Version 1)
Quarter: 2022Q2

REPORT INFORMATION
  Report Type: Spontaneous
  Country: FR (occurrence: FR)
  Receive Date: 20220513
  Receipt Date: 20220513
  Transmission Date: 20220721
  Serious: Yes (Other)
  Sender: FDA-Public Use
  Company Number: None

PATIENT
  Age: 52 Year
  Sex: Male

DRUGS (2)
  1. ACETAMINOPHEN [Suspect]
     Active Substance: ACETAMINOPHEN
     Indication: Restless legs syndrome
     Dosage: 3 DOSAGE FORM, QD, (2 TO 3 TABLETS/TAKE ALMOST DAILY)
     Route: 048
  2. CODEINE [Suspect]
     Active Substance: CODEINE
     Indication: Restless legs syndrome
     Dosage: 3 DOSAGE FORM, QD, (2 TO 3 TABLETS/TAKE ALMOST DAILY)
     Route: 048

REACTIONS (1)
  - Intentional product misuse [Not Recovered/Not Resolved]
